FAERS Safety Report 21824102 (Version 1)
Quarter: 2023Q1

REPORT INFORMATION
  Report Type: Spontaneous
  Country: US (occurrence: None)
  Receive Date: 20230104
  Receipt Date: 20230104
  Transmission Date: 20230418
  Serious: No
  Sender: FDA-Public Use
  Company Number: None

PATIENT
  Age: 56 Year
  Sex: Female
  Weight: 85.37 kg

DRUGS (19)
  1. CAPECITABINE [Suspect]
     Active Substance: CAPECITABINE
     Indication: Breast cancer female
     Dosage: FREQUENCY : TWICE A DAY;?
     Route: 048
     Dates: end: 20221231
  2. ATIVAN [Concomitant]
     Active Substance: LORAZEPAM
  3. CALCIUM CITRATE [Concomitant]
     Active Substance: CALCIUM CITRATE
  4. DAILY VITAMIN/IRON [Concomitant]
  5. FAMOTIDINE [Concomitant]
     Active Substance: FAMOTIDINE
  6. FENTANYL [Concomitant]
     Active Substance: FENTANYL
  7. FLUTICASONE [Concomitant]
     Active Substance: FLUTICASONE
  8. GABAPENTIN [Concomitant]
     Active Substance: GABAPENTIN
  9. HERCEPTIN [Concomitant]
     Active Substance: TRASTUZUMAB
  10. LETROZOLE [Concomitant]
     Active Substance: LETROZOLE
  11. LOPERAMIDE [Concomitant]
     Active Substance: LOPERAMIDE
  12. PERJETA [Concomitant]
     Active Substance: PERTUZUMAB
  13. POTASSIUM CHLORIDE [Concomitant]
     Active Substance: POTASSIUM CHLORIDE
  14. PROTONIX [Concomitant]
     Active Substance: PANTOPRAZOLE SODIUM
  15. ZOFRAN [Concomitant]
     Active Substance: ONDANSETRON HYDROCHLORIDE
  16. PROCHLORPERAZINE [Concomitant]
     Active Substance: PROCHLORPERAZINE
  17. LORATADINE [Concomitant]
     Active Substance: LORATADINE
  18. MAGNESIUM [Concomitant]
     Active Substance: MAGNESIUM
  19. OXYCODONE [Concomitant]
     Active Substance: OXYCODONE

REACTIONS (1)
  - Hospice care [None]
